FAERS Safety Report 24581514 (Version 1)
Quarter: 2024Q4

REPORT INFORMATION
  Report Type: Spontaneous
  Country: PT (occurrence: PT)
  Receive Date: 20241105
  Receipt Date: 20241105
  Transmission Date: 20250115
  Serious: Yes (Other)
  Sender: TEVA
  Company Number: None

PATIENT
  Age: 31 Year
  Sex: Female

DRUGS (2)
  1. AMOXICILLIN\CLAVULANIC ACID [Suspect]
     Active Substance: AMOXICILLIN\CLAVULANIC ACID
     Indication: Tonsillitis bacterial
     Dosage: 12/12H; AMOXICILLIN + CLAVULANIC ACID
     Route: 048
     Dates: start: 20221201, end: 20221202
  2. Dienogest Ethinylestradiol [Concomitant]
     Indication: Hormonal contraception
     Dosage: DIENOGEST + ETHINYLESTRADIOL
     Route: 048

REACTIONS (1)
  - Anaphylactic reaction [Recovered/Resolved]

NARRATIVE: CASE EVENT DATE: 20221202
